FAERS Safety Report 21668109 (Version 1)
Quarter: 2022Q4

REPORT INFORMATION
  Report Type: Spontaneous
  Country: IT (occurrence: IT)
  Receive Date: 20221201
  Receipt Date: 20221201
  Transmission Date: 20230113
  Serious: Yes (Other)
  Sender: FDA-Public Use
  Company Number: IT-JNJFOC-20221155374

PATIENT

DRUGS (2)
  1. REMICADE [Suspect]
     Active Substance: INFLIXIMAB
     Indication: Inflammatory bowel disease
     Route: 041
  2. SIMPONI [Suspect]
     Active Substance: GOLIMUMAB
     Indication: Inflammatory bowel disease
     Route: 058

REACTIONS (25)
  - Syncope [Unknown]
  - Pancreatitis [Unknown]
  - Cardiac disorder [Unknown]
  - Therapeutic response decreased [Unknown]
  - Asthenia [Unknown]
  - Hot flush [Unknown]
  - Pyrexia [Unknown]
  - Pallor [Unknown]
  - Chest pain [Unknown]
  - Tachycardia [Unknown]
  - Hypotension [Unknown]
  - Pruritus [Unknown]
  - Urticaria [Unknown]
  - Somnolence [Unknown]
  - Confusional state [Unknown]
  - Headache [Unknown]
  - Tonsillitis [Unknown]
  - Dyspnoea [Unknown]
  - Nasopharyngitis [Unknown]
  - Nausea [Unknown]
  - Hypersensitivity [Unknown]
  - Arthralgia [Unknown]
  - Leukocytosis [Unknown]
  - Presyncope [Unknown]
  - Herpes zoster [Unknown]
